FAERS Safety Report 9526124 (Version 4)
Quarter: 2013Q4

REPORT INFORMATION
  Report Type: Spontaneous
  Country: JP (occurrence: JP)
  Receive Date: 20130916
  Receipt Date: 20131205
  Transmission Date: 20140711
  Serious: Yes (Hospitalization)
  Sender: FDA-Public Use
  Company Number: JP-JNJFOC-20130906017

PATIENT
  Age: 80 Year
  Sex: Male
  Weight: 50 kg

DRUGS (6)
  1. ITRIZOLE [Suspect]
     Indication: TINEA PEDIS
     Route: 048
     Dates: end: 20130908
  2. ITRIZOLE [Suspect]
     Indication: TINEA PEDIS
     Dosage: PULSE THERAPY
     Route: 048
     Dates: start: 20130805
  3. DIGOXIN [Interacting]
     Indication: CARDIAC FAILURE CHRONIC
     Route: 065
  4. BAYASPIRIN [Concomitant]
     Indication: CARDIAC FAILURE CHRONIC
     Dosage: ENTERIC COATING
     Route: 048
  5. LIPITOR [Concomitant]
     Indication: HYPERLIPIDAEMIA
     Route: 048
  6. SINGULAIR [Concomitant]
     Indication: ASTHMA
     Route: 048

REACTIONS (6)
  - Decreased appetite [Recovered/Resolved]
  - Nausea [Recovered/Resolved]
  - Drug interaction [Recovered/Resolved]
  - Blood pressure decreased [Recovered/Resolved]
  - Toxicity to various agents [Recovered/Resolved]
  - Back pain [Recovered/Resolved]
